FAERS Safety Report 11043636 (Version 4)
Quarter: 2015Q3

REPORT INFORMATION
  Report Type: Spontaneous
  Country: US (occurrence: US)
  Receive Date: 20150417
  Receipt Date: 20150722
  Transmission Date: 20151125
  Serious: No
  Sender: FDA-Public Use
  Company Number: US-UNITED THERAPEUTICS-UNT-2015-004313

PATIENT
  Age: 68 Year
  Sex: Female
  Weight: 50.79 kg

DRUGS (3)
  1. REMODULIN [Suspect]
     Active Substance: TREPROSTINIL
     Indication: PULMONARY HYPERTENSION
     Dosage: 0.020 ?G/KG/MIN, CONTINUING
     Route: 058
     Dates: start: 20150409
  2. REMODULIN [Suspect]
     Active Substance: TREPROSTINIL
     Dosage: 0.005 ?G/KG/MIN, CONTINUING
     Route: 058
     Dates: start: 20150409
  3. REMODULIN [Suspect]
     Active Substance: TREPROSTINIL
     Dosage: UNK
     Dates: start: 20150408

REACTIONS (8)
  - Chills [Unknown]
  - Rash generalised [Recovering/Resolving]
  - Feeling cold [Unknown]
  - Weight decreased [Unknown]
  - Dyspnoea exertional [Recovering/Resolving]
  - Oedema peripheral [Unknown]
  - Dry skin [Unknown]
  - Rales [Recovering/Resolving]

NARRATIVE: CASE EVENT DATE: 201504
